FAERS Safety Report 8975774 (Version 2)
Quarter: 2013Q1

REPORT INFORMATION
  Report Type: Spontaneous
  Country: US (occurrence: US)
  Receive Date: 20121219
  Receipt Date: 20130325
  Transmission Date: 20140127
  Serious: Yes (Hospitalization)
  Sender: FDA-Public Use
  Company Number: US-ASTRAZENECA-2012SE92510

PATIENT
  Age: 12 Year
  Sex: Male
  Weight: 31.3 kg

DRUGS (6)
  1. PULMICORT [Suspect]
     Indication: ASTHMA
     Route: 055
     Dates: start: 200312
  2. PULMICORT [Suspect]
     Indication: ASTHMA
     Route: 055
     Dates: start: 2012
  3. PULMICORT [Suspect]
     Indication: ASTHMA
     Route: 055
     Dates: start: 2012
  4. PULMICORT [Suspect]
     Indication: ASTHMA
     Route: 055
  5. PULMICORT [Suspect]
     Indication: ASTHMA
     Route: 055
  6. VENTOLIN [Concomitant]
     Indication: INHALATION THERAPY
     Route: 055
     Dates: start: 200312

REACTIONS (12)
  - Nasopharyngitis [Recovered/Resolved]
  - Asthma [Recovered/Resolved]
  - Influenza [Recovered/Resolved]
  - Respiratory syncytial virus infection [Recovered/Resolved]
  - Gastrooesophageal reflux disease [Unknown]
  - Chest pain [Unknown]
  - Dyspnoea [Unknown]
  - Chest discomfort [Unknown]
  - Adverse drug reaction [Unknown]
  - Oropharyngeal pain [Unknown]
  - Throat irritation [Unknown]
  - Off label use [Unknown]
